FAERS Safety Report 8756212 (Version 3)
Quarter: 2012Q4

REPORT INFORMATION
  Report Type: Spontaneous
  Country: US (occurrence: None)
  Receive Date: 20120816
  Receipt Date: 20120917
  Transmission Date: 20130627
  Serious: Yes (Other)
  Sender: FDA-Public Use
  Company Number: 2012AP002394

PATIENT
  Age: 91 Year
  Sex: Male

DRUGS (1)
  1. AMIODARONE HYDROCHLORIDE [Suspect]
     Indication: ARRHYTHMIA

REACTIONS (5)
  - Myoclonus [None]
  - Dyskinesia [None]
  - Gait disturbance [None]
  - Dysstasia [None]
  - Feeding disorder [None]
